FAERS Safety Report 7682491-6 (Version None)
Quarter: 2011Q3

REPORT INFORMATION
  Report Type: 
  Country: None (occurrence: None)
  Receive Date: 20110815
  Receipt Date: 20110807
  Transmission Date: 20111222
  Serious: Yes (Hospitalization)
  Sender: FDA-Public Use
  Company Number: PHHY2011JP71394

PATIENT
  Age: 7 Year
  Sex: Female

DRUGS (1)
  1. CARBAMAZEPINE [Suspect]
     Indication: PARTIAL SEIZURES
     Dosage: UNK UKN, UNK

REACTIONS (6)
  - NEURALGIC AMYOTROPHY [None]
  - POSTICTAL PARALYSIS [None]
  - GRAND MAL CONVULSION [None]
  - HYPOREFLEXIA [None]
  - NERVE CONDUCTION STUDIES ABNORMAL [None]
  - PARALYSIS FLACCID [None]
